FAERS Safety Report 8286663-1 (Version None)
Quarter: 2012Q2

REPORT INFORMATION
  Report Type: 
  Country: None (occurrence: None)
  Receive Date: 20120416
  Receipt Date: 20120410
  Transmission Date: 20120825
  Serious: Yes (Other)
  Sender: FDA-Public Use
  Company Number: US-JNJFOC-20120202510

PATIENT
  Sex: Male
  Weight: 101.15 kg

DRUGS (27)
  1. HERBAL PREPARATION [Concomitant]
  2. PREDNISONE TAB [Concomitant]
     Dates: end: 20120113
  3. TRIAMCINOLONE [Concomitant]
     Route: 061
     Dates: end: 20111223
  4. ASPIRIN [Concomitant]
     Route: 048
  5. VITAMIN D [Concomitant]
     Route: 048
  6. NORCO [Concomitant]
     Dosage: 10/325 MG
     Route: 048
  7. ADVAIR DISKUS 100/50 [Concomitant]
     Dosage: 100/50 MCG
     Route: 055
     Dates: end: 20111223
  8. CLARITIN [Concomitant]
     Route: 048
  9. CYCLOBENZAPRINE HYDROCHLORIDE [Concomitant]
     Route: 048
  10. MULTI-VITAMINS [Concomitant]
     Route: 048
  11. NAPROXEN SODIUM [Concomitant]
     Route: 048
  12. OMEGA 3-6-9 [Concomitant]
  13. AMBIEN [Concomitant]
     Route: 048
     Dates: end: 20111223
  14. ALPRAZOLAM [Concomitant]
     Route: 048
  15. MELATONIN [Concomitant]
  16. MELOXICAM [Concomitant]
     Route: 048
  17. ALBUTEROL [Concomitant]
     Dosage: 90 MCG
     Route: 055
     Dates: end: 20111223
  18. DOCUSATE SODIUM [Concomitant]
     Route: 048
  19. LUNESTA [Concomitant]
     Route: 048
  20. PREDNISONE TAB [Concomitant]
  21. PRILOSEC [Concomitant]
     Route: 048
  22. SIMPONI [Suspect]
     Indication: RHEUMATOID ARTHRITIS
     Route: 058
     Dates: start: 20100415
  23. NIACIN [Concomitant]
     Route: 048
  24. METHOTREXATE [Concomitant]
     Dates: end: 20111223
  25. ST. JOHN'S WORT [Concomitant]
     Route: 048
  26. ZANTAC [Concomitant]
     Route: 048
     Dates: end: 20111223
  27. SIMPONI [Suspect]
     Route: 058
     Dates: start: 20110601, end: 20120113

REACTIONS (3)
  - MYELITIS TRANSVERSE [None]
  - INAPPROPRIATE SCHEDULE OF DRUG ADMINISTRATION [None]
  - DRUG EFFECT DECREASED [None]
